FAERS Safety Report 8598164-1 (Version None)
Quarter: 2012Q3

REPORT INFORMATION
  Report Type: 
  Country: None (occurrence: None)
  Receive Date: 20120816
  Receipt Date: 20120814
  Transmission Date: 20120928
  Serious: Yes (Death)
  Sender: FDA-Public Use
  Company Number: PHHY2012DK055653

PATIENT
  Sex: Female
  Weight: 47 kg

DRUGS (2)
  1. CONCERTA [Suspect]
     Indication: ATTENTION DEFICIT/HYPERACTIVITY DISORDER
     Dosage: 36 MG, QD
     Route: 048
     Dates: start: 20100922
  2. RITALIN [Suspect]
     Indication: ATTENTION DEFICIT/HYPERACTIVITY DISORDER
     Dosage: 0.5 MG, QD
     Route: 048
     Dates: start: 20100816

REACTIONS (3)
  - CARDIAC MURMUR [None]
  - TACHYARRHYTHMIA [None]
  - HYPERTROPHIC CARDIOMYOPATHY [None]
